FAERS Safety Report 13058564 (Version 1)
Quarter: 2016Q4

REPORT INFORMATION
  Report Type: Spontaneous
  Country: US (occurrence: US)
  Receive Date: 20161223
  Receipt Date: 20161223
  Transmission Date: 20170207
  Serious: No
  Sender: FDA-Public Use
  Company Number: US-BAUSCH-BL-2016-001062

PATIENT
  Age: 62 Year
  Sex: Male

DRUGS (3)
  1. XENAZINE [Suspect]
     Active Substance: TETRABENAZINE
     Dosage: 50MG AM, 25MG?AFTERNOON, 50MG PM
     Route: 048
     Dates: start: 20120106
  2. XENAZINE [Suspect]
     Active Substance: TETRABENAZINE
     Indication: HUNTINGTON^S DISEASE
     Route: 048
     Dates: start: 20120105
  3. XENAZINE [Suspect]
     Active Substance: TETRABENAZINE
     Dosage: 25MG IN AM AND AFTERNOON, AND 50MG;DIRECTLY AS DIRECTED
     Route: 048
     Dates: start: 20120119

REACTIONS (4)
  - Weight increased [Unknown]
  - Prescribed overdose [Unknown]
  - Hyperhidrosis [Unknown]
  - Depression [Unknown]

NARRATIVE: CASE EVENT DATE: 20160215
